FAERS Safety Report 24334812 (Version 1)
Quarter: 2024Q3

REPORT INFORMATION
  Report Type: Spontaneous
  Country: US (occurrence: US)
  Receive Date: 20240918
  Receipt Date: 20240918
  Transmission Date: 20241017
  Serious: No
  Sender: JOHNSON AND JOHNSON
  Company Number: US-VIIV HEALTHCARE LIMITED-US2024AMR113956

PATIENT
  Age: 44 Year
  Sex: Male

DRUGS (2)
  1. RILPIVIRINE [Suspect]
     Active Substance: RILPIVIRINE
     Indication: HIV infection
     Dosage: UNK, 600/900MG SUSP INJ, MONTHLY FOR 2 MONTHS, THEN EVERY OTHER MONTH
     Route: 030
     Dates: start: 20220801, end: 20240911
  2. CABOTEGRAVIR [Suspect]
     Active Substance: CABOTEGRAVIR
     Indication: HIV infection
     Dosage: UNK, 600/900MG SUSP INJ, MONTHLY FOR 2 MONTHS, THEN EVERY OTHER MONTH
     Route: 030
     Dates: start: 20220801, end: 20240911

REACTIONS (2)
  - Injection site nodule [Not Recovered/Not Resolved]
  - Influenza like illness [Not Recovered/Not Resolved]
